FAERS Safety Report 9752092 (Version 5)
Quarter: 2014Q1

REPORT INFORMATION
  Report Type: Spontaneous
  Country: DE (occurrence: DE)
  Receive Date: 20131213
  Receipt Date: 20140327
  Transmission Date: 20141002
  Serious: Yes (Death, Other)
  Sender: FDA-Public Use
  Company Number: PHHY2013DE136834

PATIENT
  Age: 86 Year
  Sex: Male
  Weight: 70 kg

DRUGS (4)
  1. ULTIBRO BREEZHALER [Suspect]
     Indication: CHRONIC OBSTRUCTIVE PULMONARY DISEASE
     Dosage: 1 DF, ONCE/SINGLE
     Route: 055
     Dates: start: 20131126
  2. SYMBICORT [Concomitant]
  3. SALBUTAMOL [Concomitant]
  4. BEROTEC [Concomitant]
     Indication: DYSPNOEA

REACTIONS (8)
  - Cardiac arrest [Fatal]
  - Circulatory collapse [Fatal]
  - Bronchospasm paradoxical [Fatal]
  - Aphonia [Fatal]
  - Apnoea [Fatal]
  - Dysphonia [Fatal]
  - Dyspnoea [Fatal]
  - Fall [Unknown]
